FAERS Safety Report 17717505 (Version 1)
Quarter: 2020Q2

REPORT INFORMATION
  Report Type: Spontaneous
  Country: US (occurrence: US)
  Receive Date: 20200428
  Receipt Date: 20200428
  Transmission Date: 20200714
  Serious: Yes (Hospitalization, Other)
  Sender: FDA-Public Use
  Company Number: US-RECKITT BENCKISER HEALTHCARE INT LIMITED-RB-85761-2020

PATIENT
  Age: 69 Year
  Sex: Male

DRUGS (2)
  1. DEXTROMETHORPHAN [Suspect]
     Active Substance: DEXTROMETHORPHAN
     Indication: COUGH
     Dosage: UNK, PATIENT INGESTED A BOTTLE OF DEXTROMETHORPHAN CONTAINING COUGH SYRUP (480 MG DEXTROMETHORPHAN)
     Route: 048
  2. DEXTROMETHORPHAN;QUINIDINE [Suspect]
     Active Substance: DEXTROMETHORPHAN HYDROBROMIDE\QUINIDINE SULFATE
     Indication: AFFECT LABILITY
     Dosage: UNK
     Route: 065

REACTIONS (3)
  - Depressed level of consciousness [Recovered/Resolved]
  - Overdose [Recovered/Resolved]
  - Seizure [Recovered/Resolved]
